FAERS Safety Report 5930404-7 (Version None)
Quarter: 2008Q4

REPORT INFORMATION
  Report Type: 
  Country: None (occurrence: None)
  Receive Date: 20081021
  Receipt Date: 20081008
  Transmission Date: 20090506
  Serious: No
  Sender: FDA-Public Use
  Company Number: SPI200800495

PATIENT
  Age: 30 Year
  Sex: Female
  Weight: 78 kg

DRUGS (4)
  1. AMITIZA [Suspect]
     Indication: CONSTIPATION
     Dosage: 24 MCG, ONE CAPSULE, BID, ORAL
     Route: 048
     Dates: start: 20080822, end: 20080917
  2. MULTIVITAMIN /00831701/ (VITAMINS NOS) [Concomitant]
  3. REGLAN /00041901/ (METOCLOPRAMIDE) [Concomitant]
  4. ACIPHEX [Concomitant]

REACTIONS (2)
  - DYSPNOEA [None]
  - NAUSEA [None]
